FAERS Safety Report 7231635-9 (Version None)
Quarter: 2011Q1

REPORT INFORMATION
  Report Type: 
  Country: None (occurrence: None)
  Receive Date: 20110118
  Receipt Date: 20110114
  Transmission Date: 20110831
  Serious: Yes (Hospitalization)
  Sender: FDA-Public Use
  Company Number: JP-PFIZER INC-2011010388

PATIENT
  Age: 2 Year

DRUGS (2)
  1. DIFLUCAN [Suspect]
     Route: 048
  2. LEUKERIN [Concomitant]

REACTIONS (2)
  - ACIDOSIS [None]
  - HYPOGLYCAEMIA [None]
